FAERS Safety Report 4429728-4 (Version None)
Quarter: 2004Q3

REPORT INFORMATION
  Report Type: 
  Country: None (occurrence: None)
  Receive Date: 20040820
  Receipt Date: 20040813
  Transmission Date: 20050211
  Serious: Yes (Hospitalization)
  Sender: FDA-Public Use
  Company Number: GB-JNJFOC-20040804672

PATIENT
  Sex: Female

DRUGS (9)
  1. REMICADE [Suspect]
     Indication: RHEUMATOID ARTHRITIS
     Dosage: LAST INFUSION.
     Route: 042
  2. FOLIC ACID [Concomitant]
  3. CO-PROXAMOL [Concomitant]
  4. CO-PROXAMOL [Concomitant]
  5. INSULATARD NPH HUMAN [Concomitant]
  6. TRITACE [Concomitant]
  7. PIRITON [Concomitant]
  8. ZOTON [Concomitant]
  9. METHOTREXATE [Concomitant]
     Route: 065

REACTIONS (1)
  - ATRIAL FIBRILLATION [None]
